FAERS Safety Report 20877385 (Version 1)
Quarter: 2022Q2

REPORT INFORMATION
  Report Type: Other
  Country: GB (occurrence: GB)
  Receive Date: 20220526
  Receipt Date: 20220526
  Transmission Date: 20220720
  Serious: Yes (Life-Threatening, Hospitalization, Disabling, Other)
  Sender: FDA-Public Use
  Company Number: GB-MACLEODS PHARMA UK LTD-MAC2022035752

PATIENT

DRUGS (1)
  1. ARIPIPRAZOLE [Suspect]
     Active Substance: ARIPIPRAZOLE
     Indication: Adverse drug reaction
     Dosage: 40 MILLIGRAM
     Route: 065
     Dates: start: 20200918, end: 20210301

REACTIONS (3)
  - Vascular headache [Not Recovered/Not Resolved]
  - Medication error [Unknown]
  - Weight increased [Unknown]

NARRATIVE: CASE EVENT DATE: 20201001
